FAERS Safety Report 13948902 (Version 7)
Quarter: 2018Q4

REPORT INFORMATION
  Report Type: Spontaneous
  Country: CA (occurrence: CA)
  Receive Date: 20170908
  Receipt Date: 20181203
  Transmission Date: 20190204
  Serious: Yes (Hospitalization, Other)
  Sender: FDA-Public Use
  Company Number: CA-PFIZER INC-2017089896

PATIENT
  Age: 64 Year
  Sex: Female

DRUGS (4)
  1. LYRICA [Concomitant]
     Active Substance: PREGABALIN
     Indication: RHEUMATOID ARTHRITIS
     Dosage: 75 MG, DAILY
  2. XELJANZ [Suspect]
     Active Substance: TOFACITINIB CITRATE
     Dosage: 5 MG, 2X/DAY
     Route: 048
     Dates: start: 2017, end: 201809
  3. METHOTREXATE. [Concomitant]
     Active Substance: METHOTREXATE
     Indication: RHEUMATOID ARTHRITIS
     Dosage: 20 MG, WEEKLY
     Route: 048
  4. XELJANZ [Suspect]
     Active Substance: TOFACITINIB CITRATE
     Indication: RHEUMATOID ARTHRITIS
     Dosage: 5 MG, 2X/DAY
     Route: 048
     Dates: start: 20170226, end: 20171128

REACTIONS (9)
  - Dyspepsia [Recovered/Resolved]
  - Malaise [Recovered/Resolved]
  - Gastric ulcer [Recovered/Resolved]
  - Crying [Recovered/Resolved]
  - Diarrhoea [Recovered/Resolved]
  - Weight increased [Recovered/Resolved]
  - Fatigue [Recovered/Resolved]
  - Pneumonia [Recovered/Resolved]
  - Blood iron decreased [Recovered/Resolved]

NARRATIVE: CASE EVENT DATE: 2017
